FAERS Safety Report 25190965 (Version 1)
Quarter: 2025Q2

REPORT INFORMATION
  Report Type: Spontaneous
  Country: FR (occurrence: FR)
  Receive Date: 20250411
  Receipt Date: 20250411
  Transmission Date: 20250716
  Serious: Yes (Hospitalization)
  Sender: TEVA
  Company Number: None

PATIENT
  Age: 58 Year
  Sex: Female

DRUGS (10)
  1. TRAMADOL [Suspect]
     Active Substance: TRAMADOL
     Indication: Pain
     Route: 065
  2. SUFENTA [Suspect]
     Active Substance: SUFENTANIL CITRATE
     Indication: Hysterectomy
     Route: 042
     Dates: start: 20201118, end: 20201118
  3. PROPOFOL [Suspect]
     Active Substance: PROPOFOL
     Indication: Cholecystectomy
     Route: 065
     Dates: start: 20240710, end: 20240710
  4. XYLOCAINE [Suspect]
     Active Substance: LIDOCAINE HYDROCHLORIDE
     Indication: Cholecystectomy
     Route: 042
     Dates: start: 20240710, end: 20240710
  5. KETAMINE HYDROCHLORIDE [Suspect]
     Active Substance: KETAMINE HYDROCHLORIDE
     Indication: Cholecystectomy
     Route: 042
     Dates: start: 20240710, end: 20240710
  6. DROPERIDOL [Suspect]
     Active Substance: DROPERIDOL
     Indication: Prophylaxis of nausea and vomiting
     Route: 042
     Dates: start: 20240710, end: 20240710
  7. CISATRACURIUM [Suspect]
     Active Substance: CISATRACURIUM
     Indication: Cholecystectomy
     Route: 042
     Dates: start: 20240707, end: 20240707
  8. BUPIVACAINE HYDROCHLORIDE [Suspect]
     Active Substance: BUPIVACAINE HYDROCHLORIDE
     Indication: Hysterectomy
     Route: 042
     Dates: start: 20201118, end: 20201118
  9. CODEINE [Suspect]
     Active Substance: CODEINE
     Indication: Pain
     Route: 048
  10. NEFOPAM HYDROCHLORIDE [Suspect]
     Active Substance: NEFOPAM HYDROCHLORIDE
     Indication: Postoperative analgesia
     Route: 048
     Dates: start: 20240710, end: 20240710

REACTIONS (5)
  - Hypotension [Not Recovered/Not Resolved]
  - Hypoaesthesia [Not Recovered/Not Resolved]
  - Asthenia [Not Recovered/Not Resolved]
  - Loss of consciousness [Not Recovered/Not Resolved]
  - Dizziness [Not Recovered/Not Resolved]

NARRATIVE: CASE EVENT DATE: 20100101
